FAERS Safety Report 7794958-0 (Version None)
Quarter: 2011Q3

REPORT INFORMATION
  Report Type: 
  Country: None (occurrence: None)
  Receive Date: 20110930
  Receipt Date: 20110927
  Transmission Date: 20111222
  Serious: Yes (Other)
  Sender: FDA-Public Use
  Company Number: GER/UKI/11/0021354

PATIENT
  Age: 81 Year
  Sex: Female
  Weight: 55 kg

DRUGS (5)
  1. FEXOFENADINE HCL [Concomitant]
  2. OMEPRAZOLE [Suspect]
     Indication: GASTROINTESTINAL PAIN
     Dosage: 20 MG, ORAL
     Route: 048
     Dates: start: 20110819, end: 20110908
  3. SIMVASTATIN [Concomitant]
  4. WARFARIN SODIUM [Concomitant]
  5. DRONEDARONE HCL [Concomitant]

REACTIONS (1)
  - GLOMERULAR FILTRATION RATE DECREASED [None]
